FAERS Safety Report 11948532 (Version 6)
Quarter: 2016Q2

REPORT INFORMATION
  Report Type: Spontaneous
  Country: US (occurrence: US)
  Receive Date: 20160125
  Receipt Date: 20160401
  Transmission Date: 20160815
  Serious: Yes (Death, Hospitalization, Other)
  Sender: FDA-Public Use
  Company Number: US-ALEXION PHARMACEUTICALS INC-A201600364

PATIENT
  Age: 14 Year
  Sex: Female

DRUGS (46)
  1. SOLIRIS [Suspect]
     Active Substance: ECULIZUMAB
     Indication: HAEMOLYTIC URAEMIC SYNDROME
     Dosage: 900 MG, UNK
     Route: 042
     Dates: start: 20160108
  2. DORNASE ALFA [Concomitant]
     Active Substance: DORNASE ALFA
     Indication: PRODUCT USED FOR UNKNOWN INDICATION
     Dosage: 2.5MG/2.5ML, BID
     Route: 065
  3. FENTANYL. [Concomitant]
     Active Substance: FENTANYL
     Dosage: 100MCG/2ML, Q1H
     Route: 065
  4. LEVOCARNITINE. [Concomitant]
     Active Substance: LEVOCARNITINE
     Indication: PRODUCT USED FOR UNKNOWN INDICATION
     Dosage: 600 MG, UNK
     Route: 065
  5. RANITIDINE. [Concomitant]
     Active Substance: RANITIDINE
     Indication: PRODUCT USED FOR UNKNOWN INDICATION
     Dosage: 150 MG, UNK
     Route: 065
  6. CALCIUM CARBONATE. [Concomitant]
     Active Substance: CALCIUM CARBONATE
     Indication: GASTROOESOPHAGEAL REFLUX DISEASE
     Dosage: 1000 MG 2 TABS, UNK
     Route: 048
  7. MIDAZOLAM [Concomitant]
     Active Substance: MIDAZOLAM\MIDAZOLAM HYDROCHLORIDE
     Indication: SEDATIVE THERAPY
     Dosage: 2MG/2ML, Q1H
     Route: 065
  8. POTASSIUM CHLORIDE. [Concomitant]
     Active Substance: POTASSIUM CHLORIDE
     Indication: PRODUCT USED FOR UNKNOWN INDICATION
     Dosage: 0.5MEQ/ML (20MEQ/40ML), Q6H
     Route: 042
  9. PROBENECID. [Concomitant]
     Active Substance: PROBENECID
     Indication: NEUTROPENIA
     Route: 065
  10. SOLIRIS [Suspect]
     Active Substance: ECULIZUMAB
     Dosage: 1200 MG, Q72HOURS
     Route: 042
  11. SODIUM CHLORIDE. [Concomitant]
     Active Substance: SODIUM CHLORIDE
     Dosage: 3 ML, Q6H
     Route: 065
  12. PANTOPRAZOLE [Concomitant]
     Active Substance: PANTOPRAZOLE SODIUM
     Indication: PRODUCT USED FOR UNKNOWN INDICATION
     Dosage: 4MG/ML (40ML/10ML), QD
     Route: 042
  13. SERTRALINE [Concomitant]
     Active Substance: SERTRALINE HYDROCHLORIDE
     Indication: PRODUCT USED FOR UNKNOWN INDICATION
     Dosage: 20 MG/ML (25MG/1.25ML), QD
     Route: 048
  14. NALOXONE [Concomitant]
     Active Substance: NALOXONE
     Indication: PRODUCT USED FOR UNKNOWN INDICATION
     Dosage: 1MG/ML (0.1MG/0.1ML), Q2MINUTES, PRN
     Route: 042
  15. OCEAN NASAL [Concomitant]
     Indication: HYPERSENSITIVITY
     Dosage: 0.65 %, Q3H
     Route: 045
  16. FENTANYL. [Concomitant]
     Active Substance: FENTANYL
     Indication: SEDATIVE THERAPY
     Dosage: 2500 ?G (1.5 ?G /KG/HR)
     Route: 065
  17. HYDROXYPROPYL METHYLCELLULOSE [Concomitant]
     Indication: DRY EYE
     Dosage: 0.5% SOLUTION 1 DROP
     Route: 047
  18. LEVALBUTEROL                       /01419301/ [Concomitant]
     Indication: WHEEZING
     Dosage: 1.25MG/0.5ML, Q6H
     Route: 045
  19. LORAZEPAM. [Concomitant]
     Active Substance: LORAZEPAM
     Indication: VOMITING
  20. ONDANSETRON [Concomitant]
     Active Substance: ONDANSETRON
     Indication: VOMITING
  21. VITAMIN D                          /00107901/ [Concomitant]
     Active Substance: ERGOCALCIFEROL
     Indication: OSTEONECROSIS
     Dosage: UNK
     Route: 065
  22. BIOTENE                            /06680101/ [Concomitant]
     Indication: PRODUCT USED FOR UNKNOWN INDICATION
     Dosage: 7.5 ML, QID
     Route: 048
  23. SODIUM CHLORIDE. [Concomitant]
     Active Substance: SODIUM CHLORIDE
     Dosage: 0.9% 1000ML
     Route: 042
  24. HEPARIN [Concomitant]
     Active Substance: HEPARIN SODIUM
     Indication: PRODUCT USED FOR UNKNOWN INDICATION
     Dosage: 10UNITS/ML FLUSH, Q8H
     Route: 042
  25. CHLOROTHIAZIDE. [Concomitant]
     Active Substance: CHLOROTHIAZIDE
     Indication: PRODUCT USED FOR UNKNOWN INDICATION
     Dosage: 28 MG/ML (126MG/4.5ML), Q12H
     Route: 042
  26. HEPARIN [Concomitant]
     Active Substance: HEPARIN SODIUM
     Dosage: 10 UNITS/ML FLUH (50 UNITS/5ML), PRN
     Route: 042
  27. ONDANSETRON [Concomitant]
     Active Substance: ONDANSETRON
     Indication: NAUSEA
     Dosage: 8MG/4ML, Q8H
     Route: 065
  28. SOLIRIS [Suspect]
     Active Substance: ECULIZUMAB
     Dosage: 1200 MG, UNK
     Route: 042
  29. SOLIRIS [Suspect]
     Active Substance: ECULIZUMAB
     Dosage: 1200 MG, UNK
     Route: 042
  30. BUDESONIDE. [Concomitant]
     Active Substance: BUDESONIDE
     Indication: PRODUCT USED FOR UNKNOWN INDICATION
     Dosage: 0.5MG/2ML, QD
     Route: 065
  31. SODIUM CHLORIDE. [Concomitant]
     Active Substance: SODIUM CHLORIDE
     Indication: PRODUCT USED FOR UNKNOWN INDICATION
     Dosage: 0.9 % 250 ML
     Route: 065
  32. SODIUM CHLORIDE. [Concomitant]
     Active Substance: SODIUM CHLORIDE
     Dosage: 0.9% OF SYRINGE 10ML, Q4H
     Route: 042
  33. SODIUM CHLORIDE. [Concomitant]
     Active Substance: SODIUM CHLORIDE
     Dosage: 0.9% OF SYRINGE (3ML/1ML), PRN
     Route: 042
  34. MYCAMINE [Concomitant]
     Active Substance: MICAFUNGIN SODIUM
     Indication: PRODUCT USED FOR UNKNOWN INDICATION
     Dosage: 100MG/100ML, QD
     Route: 065
  35. SOLIRIS [Suspect]
     Active Substance: ECULIZUMAB
     Dosage: 1200 MG, UNK
     Route: 042
  36. LORAZEPAM. [Concomitant]
     Active Substance: LORAZEPAM
     Indication: NAUSEA
     Dosage: 2MG/ML (1MG/0.5ML), Q6H
     Route: 042
  37. SOLIRIS [Suspect]
     Active Substance: ECULIZUMAB
     Dosage: 1200 MG, UNK
     Route: 042
  38. SODIUM CHLORIDE. [Concomitant]
     Active Substance: SODIUM CHLORIDE
     Dosage: 3% NEBULIZZER SOLUTION 3ML, Q6H
     Route: 065
  39. HEPARIN [Concomitant]
     Active Substance: HEPARIN SODIUM
     Dosage: 2 UNITS/ML
     Route: 042
  40. HEPARIN [Concomitant]
     Active Substance: HEPARIN SODIUM
     Dosage: 10 UNITS/ML FLUSH (10 UNITS/ML), PRN
     Route: 042
  41. URSODIOL. [Concomitant]
     Active Substance: URSODIOL
     Indication: PRODUCT USED FOR UNKNOWN INDICATION
     Dosage: 60MG/ML (300MG/5ML), TID
     Route: 048
  42. VANCOMYCIN [Concomitant]
     Active Substance: VANCOMYCIN
     Indication: PRODUCT USED FOR UNKNOWN INDICATION
     Dosage: 5MG/ML ISO OSMOTIC (700MG/140ML), QD
     Route: 042
     Dates: end: 20160205
  43. CALCIUM CHLORIDE. [Concomitant]
     Active Substance: CALCIUM CHLORIDE
     Indication: PRODUCT USED FOR UNKNOWN INDICATION
     Dosage: 1000MG/50ML, PRN
     Route: 065
  44. DIPHENHYDRAMINE. [Concomitant]
     Active Substance: DIPHENHYDRAMINE
     Indication: PRODUCT USED FOR UNKNOWN INDICATION
     Dosage: 25MG/0.5ML, Q4H
     Route: 065
  45. LABETALOL [Concomitant]
     Active Substance: LABETALOL\LABETALOL HYDROCHLORIDE
     Indication: HYPERTENSION
     Dosage: 10MG/2ML, Q6H
     Route: 042
  46. LIDOCAINE W/PRILOCAINE [Concomitant]
     Indication: PRODUCT USED FOR UNKNOWN INDICATION
     Dosage: 2.5% CREAM 5GM UD 1 APPLICATION, PRN
     Route: 065

REACTIONS (21)
  - Respiratory disorder [Fatal]
  - Electrolyte imbalance [Unknown]
  - Venoocclusive disease [Unknown]
  - Condition aggravated [Fatal]
  - Acute graft versus host disease [Fatal]
  - Sepsis [Unknown]
  - Vitamin D deficiency [Unknown]
  - Pleural effusion [Unknown]
  - Blood pressure increased [Unknown]
  - Renal failure [Fatal]
  - Hyperglycaemia [Unknown]
  - Hospitalisation [Unknown]
  - Hypoalbuminaemia [Unknown]
  - Acute lymphocytic leukaemia [Fatal]
  - Neutropenia [Unknown]
  - Osteonecrosis [Unknown]
  - Duodenal obstruction [Unknown]
  - Gastrointestinal haemorrhage [Unknown]
  - Inappropriate schedule of drug administration [Not Recovered/Not Resolved]
  - Thrombotic microangiopathy [Fatal]
  - Osteopenia [Unknown]

NARRATIVE: CASE EVENT DATE: 2016
